FAERS Safety Report 10143306 (Version 1)
Quarter: 2014Q2

REPORT INFORMATION
  Report Type: Spontaneous
  Country: US (occurrence: None)
  Receive Date: 20140429
  Receipt Date: 20140429
  Transmission Date: 20141212
  Serious: No
  Sender: FDA-Public Use
  Company Number: None

PATIENT
  Sex: Female

DRUGS (5)
  1. CYMBALTA [Suspect]
     Indication: MAJOR DEPRESSION
     Route: 048
  2. CYMBALTA [Suspect]
     Route: 048
  3. LAMICTAL [Concomitant]
  4. ALPRAZOLAM [Concomitant]
  5. IMIPRAMINE [Concomitant]

REACTIONS (3)
  - Depression [None]
  - Drug effect decreased [None]
  - Product substitution issue [None]
